FAERS Safety Report 23363291 (Version 1)
Quarter: 2024Q1

REPORT INFORMATION
  Report Type: Spontaneous
  Country: FR (occurrence: FR)
  Receive Date: 20240103
  Receipt Date: 20240103
  Transmission Date: 20240410
  Serious: Yes (Other)
  Sender: FDA-Public Use
  Company Number: None

PATIENT
  Age: 31 Year
  Sex: Female

DRUGS (1)
  1. DOSTINEX [Suspect]
     Active Substance: CABERGOLINE
     Indication: Prolactin-producing pituitary tumour
     Dosage: 1 MG, WEEKLY
     Route: 048
     Dates: start: 202102, end: 20220224

REACTIONS (1)
  - Cardiac valve disease [Recovered/Resolved]

NARRATIVE: CASE EVENT DATE: 20230224
